FAERS Safety Report 6153225-1 (Version None)
Quarter: 2009Q2

REPORT INFORMATION
  Report Type: 
  Country: None (occurrence: None)
  Receive Date: 20090413
  Receipt Date: 20090406
  Transmission Date: 20091009
  Serious: Yes (Hospitalization, Other)
  Sender: FDA-Public Use
  Company Number: US-ELI_LILLY_AND_COMPANY-US200902002431

PATIENT
  Sex: Female

DRUGS (4)
  1. FORTEO [Suspect]
     Indication: OSTEOPOROSIS
     Dates: start: 20080326, end: 20081030
  2. LIPITOR [Concomitant]
  3. MULTI-VITAMIN [Concomitant]
  4. CITRACAL + D [Concomitant]

REACTIONS (6)
  - IMPAIRED HEALING [None]
  - LIMB DISCOMFORT [None]
  - OEDEMA PERIPHERAL [None]
  - POSTOPERATIVE ADHESION [None]
  - THROMBOSIS [None]
  - UNEQUAL LIMB LENGTH [None]
